FAERS Safety Report 16952072 (Version 1)
Quarter: 2019Q4

REPORT INFORMATION
  Report Type: Spontaneous
  Country: CA (occurrence: CA)
  Receive Date: 20191023
  Receipt Date: 20191023
  Transmission Date: 20200122
  Serious: Yes (Life-Threatening, Hospitalization)
  Sender: FDA-Public Use
  Company Number: CA-PFIZER INC-2019454561

PATIENT
  Age: 48 Year
  Sex: Male
  Weight: 55 kg

DRUGS (3)
  1. KEPPRA [Interacting]
     Active Substance: LEVETIRACETAM
     Dosage: 125 MG, 2X/DAY
     Route: 065
  2. PHENYTOIN. [Suspect]
     Active Substance: PHENYTOIN
     Dosage: 400 MG, 1X/DAY
     Route: 065
  3. KEPPRA [Interacting]
     Active Substance: LEVETIRACETAM
     Dosage: 250 MG, 2X/DAY
     Route: 065

REACTIONS (4)
  - Unresponsive to stimuli [Unknown]
  - Lethargy [Unknown]
  - Drug interaction [Unknown]
  - Toxicity to various agents [Unknown]
